FAERS Safety Report 18334091 (Version 2)
Quarter: 2020Q4

REPORT INFORMATION
  Report Type: Spontaneous
  Country: US (occurrence: US)
  Receive Date: 20201001
  Receipt Date: 20201013
  Transmission Date: 20210113
  Serious: No
  Sender: FDA-Public Use
  Company Number: US-SA-2020SA269044

PATIENT

DRUGS (2)
  1. DUPIXENT [Suspect]
     Active Substance: DUPILUMAB
     Indication: ASTHMA
     Dosage: 600 MG, 1X, INJECT 2 PREFILLED SYRINGES SUBCUTANEOUSLY ON DAY 1
     Route: 058
     Dates: start: 20200926, end: 20200926
  2. DUPIXENT [Suspect]
     Active Substance: DUPILUMAB
     Dosage: 300 MG, QOW, THEN 1 INJECTION EVERY OTHER WEEK THEREAFTER
     Route: 058

REACTIONS (7)
  - Migraine [Unknown]
  - Feeling abnormal [Recovered/Resolved]
  - Off label use [Unknown]
  - Seasonal allergy [Recovered/Resolved]
  - Arthralgia [Unknown]
  - Chest discomfort [Unknown]
  - Pain in extremity [Recovered/Resolved]

NARRATIVE: CASE EVENT DATE: 2020
